FAERS Safety Report 21579494 (Version 1)
Quarter: 2022Q4

REPORT INFORMATION
  Report Type: Spontaneous
  Country: GB (occurrence: GB)
  Receive Date: 20221110
  Receipt Date: 20221110
  Transmission Date: 20230113
  Serious: Yes (Other)
  Sender: FDA-Public Use
  Company Number: GB-VERTEX PHARMACEUTICALS-2022-016671

PATIENT
  Sex: Female

DRUGS (1)
  1. ELEXACAFTOR\IVACAFTOR\TEZACAFTOR [Suspect]
     Active Substance: ELEXACAFTOR\IVACAFTOR\TEZACAFTOR
     Indication: Cystic fibrosis
     Dosage: UNKNOWN FREQ
     Route: 048

REACTIONS (18)
  - Exposure during pregnancy [Unknown]
  - Perineal injury [Unknown]
  - Cervical incompetence [Unknown]
  - Pulmonary embolism [Unknown]
  - Abortion spontaneous [Unknown]
  - Premature delivery [Unknown]
  - Caesarean section [Unknown]
  - Placenta praevia [Unknown]
  - Endometritis [Unknown]
  - Abortion induced [Unknown]
  - Mechanical ventilation [Unknown]
  - Pre-eclampsia [Unknown]
  - Ovarian hyperstimulation syndrome [Unknown]
  - Infective pulmonary exacerbation of cystic fibrosis [Unknown]
  - Haemoptysis [Unknown]
  - Gestational diabetes [Unknown]
  - Gestational hypertension [Unknown]
  - COVID-19 [Unknown]
